FAERS Safety Report 17820751 (Version 1)
Quarter: 2020Q2

REPORT INFORMATION
  Report Type: Spontaneous
  Country: US (occurrence: US)
  Receive Date: 20200525
  Receipt Date: 20200525
  Transmission Date: 20200714
  Serious: No
  Sender: FDA-Public Use
  Company Number: US-ALKEM LABORATORIES LIMITED-US-ALKEM-2019-05873

PATIENT
  Age: 24 Year
  Sex: Female

DRUGS (4)
  1. IV KETAMINE [Concomitant]
     Indication: OBSESSIVE-COMPULSIVE DISORDER
     Dosage: UNKNOWN
     Route: 065
  2. IV KETAMINE [Concomitant]
     Indication: DEPRESSION
  3. RILUZOLE TABLETS, USP [Suspect]
     Active Substance: RILUZOLE
     Indication: OBSESSIVE-COMPULSIVE DISORDER
     Dosage: UNKNOWN
     Route: 048
     Dates: start: 20170701
  4. RILUZOLE TABLETS, USP [Suspect]
     Active Substance: RILUZOLE
     Indication: DEPRESSION

REACTIONS (1)
  - Product use in unapproved indication [Unknown]
